FAERS Safety Report 4354044-9 (Version None)
Quarter: 2004Q2

REPORT INFORMATION
  Report Type: 
  Country: None (occurrence: None)
  Receive Date: 20040506
  Receipt Date: 20031216
  Transmission Date: 20050107
  Serious: Yes (Hospitalization)
  Sender: FDA-Public Use
  Company Number: 200411519JP

PATIENT
  Age: 73 Year
  Sex: Female
  Weight: 51 kg

DRUGS (7)
  1. ARAVA [Suspect]
     Indication: RHEUMATOID ARTHRITIS
     Route: 048
     Dates: start: 20031111, end: 20040306
  2. WARFARIN SODIUM [Suspect]
     Indication: ARRHYTHMIA
     Route: 048
     Dates: start: 20011101
  3. VOLTAREN - SLOW RELEASE ^CIBA-GEIGY^ [Suspect]
     Indication: PAIN
     Route: 048
     Dates: start: 20011101
  4. SUNRYTHM [Concomitant]
     Indication: ARRHYTHMIA
     Route: 048
     Dates: start: 20011101
  5. ALDACTONE-A [Concomitant]
     Indication: THROMBOSIS PROPHYLAXIS
     Route: 048
     Dates: start: 20011101
  6. NORVASC [Concomitant]
     Indication: HYPERTENSION
     Route: 048
     Dates: start: 20011101
  7. SHIOSOL [Concomitant]
     Indication: RHEUMATOID ARTHRITIS
     Route: 030
     Dates: start: 20011101

REACTIONS (7)
  - ASPARTATE AMINOTRANSFERASE INCREASED [None]
  - BLOOD ALKALINE PHOSPHATASE INCREASED [None]
  - BLOOD CREATININE INCREASED [None]
  - GASTRODUODENAL ULCER [None]
  - HAEMOGLOBIN DECREASED [None]
  - MELAENA [None]
  - RED BLOOD CELL COUNT DECREASED [None]
